FAERS Safety Report 12079525 (Version 1)
Quarter: 2016Q1

REPORT INFORMATION
  Report Type: Spontaneous
  Country: FI (occurrence: FI)
  Receive Date: 20160216
  Receipt Date: 20160216
  Transmission Date: 20160526
  Serious: Yes (Death, Hospitalization, Other)
  Sender: FDA-Public Use
  Company Number: FI-TEVA-633497ISR

PATIENT

DRUGS (2)
  1. VARFARINE [Suspect]
     Active Substance: WARFARIN SODIUM
  2. CITALOPRAM [Suspect]
     Active Substance: CITALOPRAM HYDROBROMIDE

REACTIONS (2)
  - Gastrointestinal haemorrhage [Fatal]
  - Haemorrhage intracranial [Fatal]
